FAERS Safety Report 18474911 (Version 2)
Quarter: 2021Q2

REPORT INFORMATION
  Report Type: Spontaneous
  Country: US (occurrence: US)
  Receive Date: 20201106
  Receipt Date: 20210623
  Transmission Date: 20210717
  Serious: Yes (Other)
  Sender: FDA-Public Use
  Company Number: US-PFIZER INC-2020428111

PATIENT
  Age: 60 Year
  Sex: Female

DRUGS (16)
  1. SPIRONOLACTONE. [Concomitant]
     Active Substance: SPIRONOLACTONE
  2. XELJANZ XR [Suspect]
     Active Substance: TOFACITINIB CITRATE
     Indication: RHEUMATOID ARTHRITIS
     Dosage: 11 MG, 1X/DAY
     Route: 048
     Dates: start: 20200809
  3. TURMERIC + [Concomitant]
     Dosage: 450 MG?5
  4. FLUOXETINE HCL [Concomitant]
     Active Substance: FLUOXETINE HYDROCHLORIDE
  5. METOPROLOL SUCCINATE. [Concomitant]
     Active Substance: METOPROLOL SUCCINATE
  6. DIGOXIN. [Concomitant]
     Active Substance: DIGOXIN
     Dosage: 125 MCG
  7. XIIDRA [Concomitant]
     Active Substance: LIFITEGRAST
  8. OMEGA?3 NOS [Concomitant]
     Active Substance: OMEGA-3 FATTY ACIDS
  9. VITAMIN D3 [Concomitant]
     Active Substance: CHOLECALCIFEROL
     Dosage: 25 MCG
  10. FUROSEMIDE. [Concomitant]
     Active Substance: FUROSEMIDE
  11. DAILY VITE [ASCORBIC ACID;COLECALCIFEROL;CYANOCOBALAMIN;FOLIC ACID;NIC [Concomitant]
  12. TYLENOL [Concomitant]
     Active Substance: ACETAMINOPHEN
  13. CRANBERRY. [Concomitant]
     Active Substance: CRANBERRY
     Dosage: UNK
  14. VITAMIN E [Concomitant]
     Active Substance: .ALPHA.-TOCOPHEROL
  15. FOLIC ACID. [Concomitant]
     Active Substance: FOLIC ACID
  16. CYCLOBENZAPRINE HCL [Concomitant]
     Active Substance: CYCLOBENZAPRINE HYDROCHLORIDE

REACTIONS (5)
  - Hypersensitivity [Not Recovered/Not Resolved]
  - Drug ineffective [Not Recovered/Not Resolved]
  - Cough [Not Recovered/Not Resolved]
  - Pneumonia [Not Recovered/Not Resolved]
  - Nasal congestion [Not Recovered/Not Resolved]

NARRATIVE: CASE EVENT DATE: 2020
